FAERS Safety Report 22032662 (Version 1)
Quarter: 2023Q1

REPORT INFORMATION
  Report Type: Spontaneous
  Country: CA (occurrence: CA)
  Receive Date: 20230224
  Receipt Date: 20230224
  Transmission Date: 20230417
  Serious: Yes (Other)
  Sender: FDA-Public Use
  Company Number: CA-009507513-2302CAN007486

PATIENT
  Age: 57 Year
  Sex: Female
  Weight: 49 kg

DRUGS (4)
  1. KEYTRUDA [Suspect]
     Active Substance: PEMBROLIZUMAB
     Indication: Endometrial cancer
     Dosage: 200 MILLIGRAM, 1 EVERY 3 WEEKS
     Route: 042
  2. LENVATINIB MESYLATE [Concomitant]
     Active Substance: LENVATINIB MESYLATE
     Route: 065
  3. ADVIL [Concomitant]
     Active Substance: IBUPROFEN
     Route: 065
  4. TYLENOL [Concomitant]
     Active Substance: ACETAMINOPHEN
     Route: 065

REACTIONS (6)
  - Abdominal adhesions [Unknown]
  - Abdominal distension [Unknown]
  - Abdominal neoplasm [Unknown]
  - Decreased appetite [Unknown]
  - Hypophagia [Unknown]
  - Pain [Unknown]
